FAERS Safety Report 4933109-4 (Version None)
Quarter: 2006Q1

REPORT INFORMATION
  Report Type: 
  Country: None (occurrence: None)
  Receive Date: 20060306
  Receipt Date: 20060221
  Transmission Date: 20060701
  Serious: Yes (Other)
  Sender: FDA-Public Use
  Company Number: US-KINGPHARMUSA00001-K200600263

PATIENT
  Age: 23 Year
  Sex: Female

DRUGS (1)
  1. APLISOL DIAGNOSTIC ANTIGEN [Suspect]
     Indication: TUBERCULIN TEST
     Dosage: .1 ML, SINGLE
     Route: 023
     Dates: start: 20060220, end: 20060220

REACTIONS (5)
  - INJECTION SITE CELLULITIS [None]
  - INJECTION SITE INFLAMMATION [None]
  - INJECTION SITE OEDEMA [None]
  - INJECTION SITE PAIN [None]
  - INJECTION SITE PRURITUS [None]
